FAERS Safety Report 7569841-6 (Version None)
Quarter: 2011Q2

REPORT INFORMATION
  Report Type: 
  Country: None (occurrence: None)
  Receive Date: 20110621
  Receipt Date: 20110621
  Transmission Date: 20111010
  Serious: Yes (Disabling)
  Sender: FDA-Public Use
  Company Number: None

PATIENT
  Sex: Female
  Weight: 73.4827 kg

DRUGS (1)
  1. FOSAMAX PLUS D [Suspect]
     Indication: OSTEOPOROSIS
     Dosage: 70 U WEEKLY ORAL
     Route: 048

REACTIONS (5)
  - MUSCULAR WEAKNESS [None]
  - FOOT FRACTURE [None]
  - IMPAIRED WORK ABILITY [None]
  - FEMUR FRACTURE [None]
  - STRESS FRACTURE [None]
